FAERS Safety Report 9609277 (Version 1)
Quarter: 2013Q4

REPORT INFORMATION
  Report Type: Spontaneous
  Country: GB (occurrence: GB)
  Receive Date: 20131009
  Receipt Date: 20131009
  Transmission Date: 20140711
  Serious: Yes (Other)
  Sender: FDA-Public Use
  Company Number: GB-TEVA-436609ISR

PATIENT
  Age: 66 Year
  Sex: Female
  Weight: 89.81 kg

DRUGS (7)
  1. AZILECT [Suspect]
     Dosage: 1 MILLIGRAM DAILY; SLOW RELEASE
  2. SUDAFED [Interacting]
     Indication: NASAL OBSTRUCTION
     Route: 048
     Dates: start: 20121130, end: 20121130
  3. SINEMET PLUS [Concomitant]
     Dosage: 3 DOSAGE FORMS DAILY; CARBIDOPA 25MG AND LEVIDOPA 100MG, 1 TABLET 3 TIMES A DAY.
  4. SINEMET [Concomitant]
     Dosage: 3 DOSAGE FORMS DAILY; CARBIDOPA 12.5MG AND LEVODOPA 50 MG 1 TABLET 3 TIMES A DAY
  5. SINEMET CR [Concomitant]
     Dosage: 1 DOSAGE FORMS DAILY; CARBIDOPA 50MG AND LEVODOPA 200MG 1 TABLET AT NIGHT
  6. REQUIP [Concomitant]
     Dosage: 8 MILLIGRAM DAILY; 1 TABLET DAILY.
  7. REGURIN [Concomitant]
     Dosage: 40 MILLIGRAM DAILY; 1 TABLET TWICE A DAY.

REACTIONS (7)
  - Headache [Recovered/Resolved]
  - Hyperhidrosis [Recovered/Resolved]
  - Nausea [Recovered/Resolved]
  - Vomiting [Recovered/Resolved]
  - Tremor [Recovered/Resolved]
  - Feeling hot [Recovered/Resolved]
  - Drug interaction [Unknown]
